FAERS Safety Report 15563376 (Version 7)
Quarter: 2019Q2

REPORT INFORMATION
  Report Type: Report from Study
  Country: US (occurrence: US)
  Receive Date: 20181029
  Receipt Date: 20190607
  Transmission Date: 20190711
  Serious: Yes (Hospitalization, Other)
  Sender: FDA-Public Use
  Company Number: US-ACTELION-A-US2018-180651

PATIENT
  Age: 62 Year
  Sex: Female
  Weight: 51.25 kg

DRUGS (5)
  1. LETAIRIS [Concomitant]
     Active Substance: AMBRISENTAN
  2. VELETRI [Suspect]
     Active Substance: EPOPROSTENOL
     Dosage: 20 NG/KG, PER MIN
     Route: 042
  3. NITRO [Concomitant]
     Active Substance: NITROGLYCERIN
     Dosage: UNK, BID
     Route: 061
  4. TADALAFIL. [Suspect]
     Active Substance: TADALAFIL
     Indication: PRODUCT USED FOR UNKNOWN INDICATION
     Dosage: UNK
     Route: 065
     Dates: end: 201811
  5. VELETRI [Suspect]
     Active Substance: EPOPROSTENOL
     Indication: PULMONARY HYPERTENSION
     Dosage: 22 NG/KG, PER MIN
     Route: 042

REACTIONS (10)
  - Headache [Unknown]
  - Malaise [Unknown]
  - Rash [Unknown]
  - Upper limb fracture [Recovered/Resolved]
  - Hospitalisation [Unknown]
  - Diarrhoea [Unknown]
  - Nausea [Unknown]
  - Finger amputation [Unknown]
  - Constipation [Unknown]
  - Dyspnoea [Recovering/Resolving]

NARRATIVE: CASE EVENT DATE: 20181016
